FAERS Safety Report 25627424 (Version 2)
Quarter: 2025Q3

REPORT INFORMATION
  Report Type: Spontaneous
  Country: US (occurrence: US)
  Receive Date: 20250731
  Receipt Date: 20250903
  Transmission Date: 20251020
  Serious: No
  Sender: PFIZER
  Company Number: US-PFIZER INC-202500098808

PATIENT
  Age: 14 Year
  Sex: Male
  Weight: 34.1 kg

DRUGS (2)
  1. GENOTROPIN [Suspect]
     Active Substance: SOMATROPIN
     Indication: Short stature
  2. GENOTROPIN [Suspect]
     Active Substance: SOMATROPIN
     Dates: start: 202505

REACTIONS (2)
  - Product prescribing error [Unknown]
  - Device information output issue [Unknown]

NARRATIVE: CASE EVENT DATE: 20250724
